FAERS Safety Report 7983739-0 (Version None)
Quarter: 2011Q4

REPORT INFORMATION
  Report Type: 
  Country: None (occurrence: None)
  Receive Date: 20111215
  Receipt Date: 20111208
  Transmission Date: 20120403
  Serious: Yes (Life-Threatening, Hospitalization)
  Sender: FDA-Public Use
  Company Number: US-ROCHE-1020721

PATIENT
  Sex: Male
  Weight: 76.272 kg

DRUGS (6)
  1. OXYCONTIN [Concomitant]
     Indication: PAIN
     Route: 048
     Dates: start: 20110601
  2. PREDNISONE [Concomitant]
  3. ZELBORAF [Suspect]
     Route: 048
     Dates: start: 20111028, end: 20111115
  4. ZELBORAF [Suspect]
     Indication: METASTATIC MALIGNANT MELANOMA
     Route: 048
     Dates: start: 20110823, end: 20111019
  5. ZOMETA [Concomitant]
     Indication: METASTASES TO BONE
     Route: 042
     Dates: start: 20110214, end: 20111019
  6. ASACOL [Concomitant]
     Indication: COLITIS
     Route: 048
     Dates: start: 20110601, end: 20111115

REACTIONS (4)
  - NEUTROPENIA [None]
  - ANAEMIA [None]
  - LEUKOPENIA [None]
  - ESCHERICHIA BACTERAEMIA [None]
